FAERS Safety Report 6648408-8 (Version None)
Quarter: 2010Q1

REPORT INFORMATION
  Report Type: 
  Country: None (occurrence: None)
  Receive Date: 20100324
  Receipt Date: 20100311
  Transmission Date: 20100710
  Serious: Yes (Other)
  Sender: FDA-Public Use
  Company Number: FI-ROCHE-692327

PATIENT
  Sex: Female

DRUGS (2)
  1. HERCEPTIN [Suspect]
     Dosage: DRUG DISCONTINUED.
     Route: 065
  2. DOCETAXEL [Suspect]
     Dosage: DRUG DISCONTINUED.
     Route: 065

REACTIONS (1)
  - DISEASE PROGRESSION [None]
